FAERS Safety Report 25752278 (Version 3)
Quarter: 2025Q3

REPORT INFORMATION
  Report Type: Report from Study
  Country: CA (occurrence: CA)
  Receive Date: 20250902
  Receipt Date: 20250919
  Transmission Date: 20251021
  Serious: Yes (Other)
  Sender: Alvotech
  Company Number: CA-JAMP PHARMA CORPORATION-2025-JAM-CA-01455

PATIENT
  Age: 40 Year
  Sex: Male
  Weight: 117 kg

DRUGS (1)
  1. USTEKINUMAB [Suspect]
     Active Substance: USTEKINUMAB
     Indication: Psoriasis
     Dosage: 90 MILLIGRAM, EVERY 12 WEEKS
     Route: 058
     Dates: start: 20240918, end: 20250909

REACTIONS (2)
  - Psoriatic arthropathy [Unknown]
  - Arthritis [Unknown]
